FAERS Safety Report 14407904 (Version 2)
Quarter: 2018Q1

REPORT INFORMATION
  Report Type: Spontaneous
  Country: HU (occurrence: HU)
  Receive Date: 20180118
  Receipt Date: 20180124
  Transmission Date: 20180509
  Serious: Yes (Other)
  Sender: FDA-Public Use
  Company Number: HU-BEH-2018086705

PATIENT
  Age: 31 Year
  Sex: Female

DRUGS (2)
  1. ALBUMIN HUMAN (NC) [Suspect]
     Active Substance: ALBUMIN HUMAN
     Indication: HYPOVOLAEMIA
     Dosage: UNK
     Route: 065
  2. ALBUMIN HUMAN (NC) [Suspect]
     Active Substance: ALBUMIN HUMAN
     Indication: PLASMAPHERESIS

REACTIONS (1)
  - Urticaria [Recovered/Resolved]
